FAERS Safety Report 15741938 (Version 1)
Quarter: 2018Q4

REPORT INFORMATION
  Report Type: Spontaneous
  Country: US (occurrence: US)
  Receive Date: 20181219
  Receipt Date: 20181219
  Transmission Date: 20190205
  Serious: No
  Sender: FDA-Public Use
  Company Number: US-009507513-1812USA006632

PATIENT
  Sex: Male

DRUGS (2)
  1. PROPECIA [Suspect]
     Active Substance: FINASTERIDE
     Indication: ALOPECIA
     Route: 048
  2. PROSCAR [Suspect]
     Active Substance: FINASTERIDE
     Indication: ALOPECIA
     Dosage: DIVIDED THE ONE PILL INTO 4 SECTIONS AND TOOK ONE SECTION, QD
     Route: 048
     Dates: start: 2017

REACTIONS (4)
  - Drug ineffective for unapproved indication [Unknown]
  - Wrong technique in product usage process [Unknown]
  - Product prescribing issue [Unknown]
  - Product substitution [Unknown]

NARRATIVE: CASE EVENT DATE: 2017
